FAERS Safety Report 17654143 (Version 3)
Quarter: 2020Q2

REPORT INFORMATION
  Report Type: Spontaneous
  Country: US (occurrence: US)
  Receive Date: 20200410
  Receipt Date: 20200625
  Transmission Date: 20200713
  Serious: No
  Sender: FDA-Public Use
  Company Number: US-GLAXOSMITHKLINE-US2020AMR050061

PATIENT
  Age: 68 Year
  Sex: Female

DRUGS (2)
  1. ZEJULA [Suspect]
     Active Substance: NIRAPARIB
     Dosage: 200 MG, QD
  2. ZEJULA [Suspect]
     Active Substance: NIRAPARIB
     Indication: OVARIAN CANCER
     Dosage: 300 MG, EVERYDAY
     Dates: start: 20200225

REACTIONS (8)
  - Weight decreased [Unknown]
  - Hypertension [Unknown]
  - Asthenia [Unknown]
  - Dizziness [Unknown]
  - Blood pressure increased [Unknown]
  - Constipation [Unknown]
  - Heart rate increased [Unknown]
  - Weight increased [Unknown]

NARRATIVE: CASE EVENT DATE: 202004
